FAERS Safety Report 7468058-3 (Version None)
Quarter: 2011Q2

REPORT INFORMATION
  Report Type: 
  Country: None (occurrence: None)
  Receive Date: 20110509
  Receipt Date: 20101202
  Transmission Date: 20111010
  Serious: No
  Sender: FDA-Public Use
  Company Number: US-SANOFI-AVENTIS-200918685US

PATIENT
  Age: 71 Year
  Sex: Male
  Weight: 111.13 kg

DRUGS (5)
  1. OPTICLICK [Suspect]
     Dates: start: 20060101
  2. INSULIN GLULISINE [Suspect]
     Dosage: DOSE:18 UNIT(S)
     Route: 058
  3. INSULIN GLARGINE [Suspect]
     Dosage: IN PM DOSE:18 UNIT(S)
     Route: 058
  4. INSULIN GLULISINE [Suspect]
     Dosage: IN AM DOSE:6 UNIT(S)
     Route: 058
  5. OPTICLICK [Suspect]

REACTIONS (2)
  - WRONG DRUG ADMINISTERED [None]
  - DIZZINESS [None]
